FAERS Safety Report 9611899 (Version 1)
Quarter: 2013Q4

REPORT INFORMATION
  Report Type: Spontaneous
  Country: FR (occurrence: FR)
  Receive Date: 20131010
  Receipt Date: 20131010
  Transmission Date: 20140711
  Serious: Yes (Other)
  Sender: FDA-Public Use
  Company Number: FR-JNJFOC-20131002291

PATIENT
  Age: 73 Year
  Sex: Female

DRUGS (5)
  1. REMICADE [Suspect]
     Indication: POLYCHONDRITIS
     Route: 042
     Dates: start: 20120208
  2. PLAQUENIL [Concomitant]
     Route: 065
  3. CORTANCYL [Concomitant]
     Route: 065
  4. TAHOR [Concomitant]
     Route: 065
  5. PARIET [Concomitant]
     Route: 065

REACTIONS (2)
  - Squamous cell carcinoma [Recovered/Resolved with Sequelae]
  - Off label use [Unknown]
